FAERS Safety Report 4512806-9 (Version None)
Quarter: 2004Q4

REPORT INFORMATION
  Report Type: 
  Country: None (occurrence: None)
  Receive Date: 20041119
  Receipt Date: 20041119
  Transmission Date: 20050328
  Serious: No
  Sender: FDA-Public Use
  Company Number: None

PATIENT
  Sex: Female
  Weight: 65.5448 kg

DRUGS (1)
  1. COUMADIN [Suspect]
     Indication: MITRAL VALVE INCOMPETENCE
     Dosage: VARIABLE

REACTIONS (1)
  - PROTHROMBIN TIME ABNORMAL [None]
